FAERS Safety Report 7511896-9 (Version None)
Quarter: 2011Q2

REPORT INFORMATION
  Report Type: 
  Country: None (occurrence: None)
  Receive Date: 20110531
  Receipt Date: 20110526
  Transmission Date: 20111010
  Serious: Yes (Other)
  Sender: FDA-Public Use
  Company Number: US-PFIZER INC-2010037402

PATIENT
  Sex: Male
  Weight: 100.23 kg

DRUGS (10)
  1. ALPRAZOLAM [Suspect]
     Dosage: 1 MG, 2X/DAY
     Dates: end: 20100321
  2. ALPRAZOLAM [Suspect]
     Dosage: 1 MG, UNK
     Dates: start: 20100321
  3. HYDROCHLOROTHIAZIDE [Concomitant]
     Dosage: 25 MG
  4. FISH OIL [Concomitant]
     Dosage: UNK
  5. SIMVASTATIN [Concomitant]
     Dosage: 40 MG
  6. ACETYLSALICYLIC ACID ENTERIC COATED [Concomitant]
     Dosage: UNK
  7. ALPRAZOLAM [Suspect]
     Dosage: 2 MG, UNK
  8. ALPRAZOLAM [Suspect]
     Indication: SUPRAVENTRICULAR EXTRASYSTOLES
     Dosage: 2 MG
     Route: 048
     Dates: start: 19900101
  9. ALPRAZOLAM [Suspect]
     Dosage: 2 MG, 1X/DAY
     Route: 048
     Dates: start: 20100321
  10. METOPROLOL [Concomitant]
     Dosage: UNK

REACTIONS (3)
  - DRUG INEFFECTIVE [None]
  - PANIC ATTACK [None]
  - SENSORY DISTURBANCE [None]
